FAERS Safety Report 18453156 (Version 3)
Quarter: 2020Q4

REPORT INFORMATION
  Report Type: Report from Study
  Country: US (occurrence: US)
  Receive Date: 20201102
  Receipt Date: 20201219
  Transmission Date: 20210114
  Serious: Yes (Other)
  Sender: FDA-Public Use
  Company Number: US-SHIRE-US202022470

PATIENT
  Age: 56 Year
  Sex: Male

DRUGS (16)
  1. TEDUGLUTIDE [Suspect]
     Active Substance: TEDUGLUTIDE
     Dosage: 2.6 MILLIGRAM, TWO DAYS A WEEK
     Route: 058
     Dates: start: 20200701
  2. TEDUGLUTIDE [Suspect]
     Active Substance: TEDUGLUTIDE
     Dosage: 0.520 UNK, QOD
     Route: 058
     Dates: start: 20200703
  3. TEDUGLUTIDE [Suspect]
     Active Substance: TEDUGLUTIDE
     Dosage: 0.520 UNK, 2/WEEK
     Route: 058
     Dates: start: 20200713
  4. TEDUGLUTIDE [Suspect]
     Active Substance: TEDUGLUTIDE
     Indication: SHORT-BOWEL SYNDROME
     Dosage: 2.6 MILLIGRAM, 2/WEEK
     Route: 058
     Dates: start: 202007
  5. TEDUGLUTIDE [Suspect]
     Active Substance: TEDUGLUTIDE
     Dosage: 0.520 UNK, QOD
     Route: 058
     Dates: start: 20200703
  6. TEDUGLUTIDE [Suspect]
     Active Substance: TEDUGLUTIDE
     Dosage: 0.520 UNK, 2/WEEK
     Route: 058
     Dates: start: 20200713
  7. TEDUGLUTIDE [Suspect]
     Active Substance: TEDUGLUTIDE
     Dosage: 0.520 UNK, 2/WEEK
     Route: 058
     Dates: start: 20200713
  8. TEDUGLUTIDE [Suspect]
     Active Substance: TEDUGLUTIDE
     Dosage: 0.520 UNK, 2/WEEK
     Route: 058
     Dates: start: 20200713
  9. TEDUGLUTIDE [Suspect]
     Active Substance: TEDUGLUTIDE
     Indication: SHORT-BOWEL SYNDROME
     Dosage: 2.6 MILLIGRAM, 2/WEEK
     Route: 058
     Dates: start: 202007
  10. TEDUGLUTIDE [Suspect]
     Active Substance: TEDUGLUTIDE
     Indication: SHORT-BOWEL SYNDROME
     Dosage: 2.6 MILLIGRAM, 2/WEEK
     Route: 058
     Dates: start: 202007
  11. TEDUGLUTIDE [Suspect]
     Active Substance: TEDUGLUTIDE
     Dosage: 2.6 MILLIGRAM, TWO DAYS A WEEK
     Route: 058
     Dates: start: 20200701
  12. TEDUGLUTIDE [Suspect]
     Active Substance: TEDUGLUTIDE
     Dosage: 2.6 MILLIGRAM, TWO DAYS A WEEK
     Route: 058
     Dates: start: 20200701
  13. TEDUGLUTIDE [Suspect]
     Active Substance: TEDUGLUTIDE
     Dosage: 0.520 UNK, QOD
     Route: 058
     Dates: start: 20200703
  14. TEDUGLUTIDE [Suspect]
     Active Substance: TEDUGLUTIDE
     Dosage: 2.6 MILLIGRAM, TWO DAYS A WEEK
     Route: 058
     Dates: start: 20200701
  15. TEDUGLUTIDE [Suspect]
     Active Substance: TEDUGLUTIDE
     Indication: SHORT-BOWEL SYNDROME
     Dosage: 2.6 MILLIGRAM, 2/WEEK
     Route: 058
     Dates: start: 202007
  16. TEDUGLUTIDE [Suspect]
     Active Substance: TEDUGLUTIDE
     Dosage: 0.520 UNK, QOD
     Route: 058
     Dates: start: 20200703

REACTIONS (9)
  - Hernia [Not Recovered/Not Resolved]
  - Condition aggravated [Not Recovered/Not Resolved]
  - Drug ineffective [Unknown]
  - Stoma complication [Unknown]
  - Pain [Not Recovered/Not Resolved]
  - Stoma site discomfort [Unknown]
  - Off label use [Unknown]
  - Flatulence [Unknown]
  - Sleep disorder [Unknown]

NARRATIVE: CASE EVENT DATE: 202011
